FAERS Safety Report 19453213 (Version 4)
Quarter: 2021Q4

REPORT INFORMATION
  Report Type: Report from Study
  Country: AR (occurrence: AR)
  Receive Date: 20210623
  Receipt Date: 20211012
  Transmission Date: 20220303
  Serious: Yes (Hospitalization, Other)
  Sender: FDA-Public Use
  Company Number: NVSC2021AR139322

PATIENT
  Age: 3 Year
  Sex: Male

DRUGS (4)
  1. OMNITROPE [Suspect]
     Active Substance: SOMATROPIN
     Indication: Growth hormone deficiency
     Dosage: 0.3 MG, QD (10 MG/ML)
     Route: 058
     Dates: start: 20190829, end: 202103
  2. OMNITROPE [Suspect]
     Active Substance: SOMATROPIN
     Dosage: UNK
     Route: 058
  3. LEVOTHYROXINE [Concomitant]
     Active Substance: LEVOTHYROXINE
     Indication: Product used for unknown indication
     Dosage: 25 UC
     Route: 065
  4. HIDROTISONA [Concomitant]
     Indication: Product used for unknown indication
     Dosage: 7.5 MG
     Route: 065

REACTIONS (5)
  - Hypoglycaemia [Unknown]
  - Seizure [Unknown]
  - Respiratory disorder [Unknown]
  - Seizure [Recovered/Resolved]
  - Infection [Recovered/Resolved]

NARRATIVE: CASE EVENT DATE: 20210131
